FAERS Safety Report 23137781 (Version 1)
Quarter: 2023Q4

REPORT INFORMATION
  Report Type: Spontaneous
  Country: IN (occurrence: IN)
  Receive Date: 20231102
  Receipt Date: 20231102
  Transmission Date: 20240110
  Serious: Yes (Hospitalization, Other)
  Sender: FDA-Public Use
  Company Number: IN-IPCA LABORATORIES LIMITED-IPC-2023-IN-001929

PATIENT

DRUGS (1)
  1. LOSARTAN POTASSIUM [Suspect]
     Active Substance: LOSARTAN POTASSIUM
     Indication: Hypertension
     Dosage: 50 MILLIGRAM, QD, EVENING
     Route: 048

REACTIONS (6)
  - Angioedema [Unknown]
  - Acute respiratory failure [Unknown]
  - Pulmonary congestion [Unknown]
  - Condition aggravated [Unknown]
  - Lung opacity [Unknown]
  - Dysphonia [Unknown]
